FAERS Safety Report 10364544 (Version 1)
Quarter: 2014Q3

REPORT INFORMATION
  Report Type: Spontaneous
  Country: US (occurrence: None)
  Receive Date: 20140805
  Receipt Date: 20140805
  Transmission Date: 20150326
  Serious: Yes (Hospitalization)
  Sender: FDA-Public Use
  Company Number: None

PATIENT
  Sex: Male
  Weight: 79.37 kg

DRUGS (9)
  1. PROCRIT [Concomitant]
     Active Substance: ERYTHROPOIETIN
     Indication: HEPATITIS C
  2. SOFOSBUVIR [Suspect]
     Active Substance: SOFOSBUVIR
     Indication: HEPATITIS C
     Route: 048
     Dates: start: 20140111, end: 20140629
  3. LACTULOSE. [Concomitant]
     Active Substance: LACTULOSE
  4. AMMOUNIUM LACTATE [Concomitant]
  5. FUROSEMIDE. [Concomitant]
     Active Substance: FUROSEMIDE
  6. MUPIROCIN. [Concomitant]
     Active Substance: MUPIROCIN
  7. PROPRANOLOL [Concomitant]
     Active Substance: PROPRANOLOL\PROPRANOLOL HYDROCHLORIDE
  8. RIBAVIRIN 1000 MG [Suspect]
     Active Substance: RIBAVIRIN
     Indication: HEPATITIS C
     Route: 048
     Dates: start: 20140111, end: 20140629
  9. AMILORIDE [Concomitant]
     Active Substance: AMILORIDE

REACTIONS (4)
  - Melaena [None]
  - Gastric ulcer [None]
  - Haemoglobin [None]
  - Varices oesophageal [None]

NARRATIVE: CASE EVENT DATE: 20140415
